FAERS Safety Report 20882198 (Version 1)
Quarter: 2022Q2

REPORT INFORMATION
  Report Type: Other
  Country: FR (occurrence: None)
  Receive Date: 20220527
  Receipt Date: 20220527
  Transmission Date: 20220720
  Serious: Yes (Hospitalization, Other)
  Sender: FDA-Public Use
  Company Number: FR-Inventia-000182

PATIENT
  Age: 29 Year
  Sex: Male
  Weight: 99 kg

DRUGS (4)
  1. PALIPERIDONE [Suspect]
     Active Substance: PALIPERIDONE
     Dosage: 150 MG
  2. DIVALPROEX SODIUM [Suspect]
     Active Substance: DIVALPROEX SODIUM
     Indication: Mood altered
     Dosage: 1500 MG/D ON DAY 3 TO DAY 12
  3. DIVALPROEX SODIUM [Suspect]
     Active Substance: DIVALPROEX SODIUM
     Indication: Mood altered
     Dosage: 2000MG/D ON DAY 0
  4. PALIPERIDONE [Suspect]
     Active Substance: PALIPERIDONE
     Indication: Product used for unknown indication
     Dosage: 100 MG

REACTIONS (9)
  - Psychotic symptom [Unknown]
  - Psychomotor hyperactivity [Unknown]
  - Euphoric mood [Unknown]
  - Delusion of grandeur [Unknown]
  - Persecutory delusion [Unknown]
  - Mania [Unknown]
  - Aggression [Unknown]
  - Disease recurrence [Unknown]
  - Treatment noncompliance [Unknown]
